FAERS Safety Report 8735928 (Version 3)
Quarter: 2012Q4

REPORT INFORMATION
  Report Type: 
  Country: JP (occurrence: JP)
  Receive Date: 20120822
  Receipt Date: 20120927
  Transmission Date: 20130627
  Serious: Yes (Hospitalization)
  Sender: FDA-Public Use
  Company Number: JP-PFIZER INC-2012202894

PATIENT
  Age: 80 Year
  Sex: Male

DRUGS (1)
  1. CHAMPIX [Suspect]
     Dosage: 0.5 mg/day
     Route: 048
     Dates: start: 20120816, end: 2012

REACTIONS (1)
  - Pneumonia [Unknown]
